FAERS Safety Report 25234042 (Version 3)
Quarter: 2025Q3

REPORT INFORMATION
  Report Type: Report from Study
  Country: CA (occurrence: CA)
  Receive Date: 20250424
  Receipt Date: 20250726
  Transmission Date: 20251020
  Serious: Yes (Hospitalization)
  Sender: TAKEDA
  Company Number: CA-TAKEDA-2025TUS038624

PATIENT
  Sex: Male

DRUGS (16)
  1. VEDOLIZUMAB [Suspect]
     Active Substance: VEDOLIZUMAB
     Indication: Crohn^s disease
  2. VEDOLIZUMAB [Suspect]
     Active Substance: VEDOLIZUMAB
  3. VEDOLIZUMAB [Suspect]
     Active Substance: VEDOLIZUMAB
  4. PREDNISONE [Concomitant]
     Active Substance: PREDNISONE
  5. AMLODIPINE [Concomitant]
     Active Substance: AMLODIPINE BESYLATE
  6. PANTOPRAZOLE [Concomitant]
     Active Substance: PANTOPRAZOLE
  7. CETIRIZINE [Concomitant]
     Active Substance: CETIRIZINE HYDROCHLORIDE
  8. MYRBETRIQ [Concomitant]
     Active Substance: MIRABEGRON
  9. SILODOSIN [Concomitant]
     Active Substance: SILODOSIN
  10. CIALIS [Concomitant]
     Active Substance: TADALAFIL
  11. TRICHLORMETHIAZIDE [Concomitant]
     Active Substance: TRICHLORMETHIAZIDE
  12. FERROUS FUMARATE [Concomitant]
     Active Substance: FERROUS FUMARATE
  13. VITAMIN B12 [Concomitant]
     Active Substance: CYANOCOBALAMIN
  14. POLYETHYLENE GLYCOL 3350 [Concomitant]
     Active Substance: POLYETHYLENE GLYCOL 3350
  15. ANUSOL NOS [Concomitant]
     Active Substance: BALSAM PERU\BENZYL BENZOATE\BISMUTH HYDROXIDE\BISMUTH SUBGALLATE\HYDROCORTISONE ACETATE\ZINC OXIDE
  16. Oracort [Concomitant]

REACTIONS (1)
  - Diverticulum intestinal [Recovering/Resolving]
